FAERS Safety Report 7653062-2 (Version None)
Quarter: 2011Q3

REPORT INFORMATION
  Report Type: 
  Country: None (occurrence: None)
  Receive Date: 20110803
  Receipt Date: 20110727
  Transmission Date: 20111222
  Serious: Yes (Other)
  Sender: FDA-Public Use
  Company Number: US-ROCHE-793423

PATIENT

DRUGS (1)
  1. BONIVA [Suspect]
     Route: 065

REACTIONS (3)
  - ABASIA [None]
  - DYSPNOEA [None]
  - BACK PAIN [None]
